FAERS Safety Report 9752947 (Version 1)
Quarter: 2013Q4

REPORT INFORMATION
  Report Type: Spontaneous
  Country: US (occurrence: None)
  Receive Date: 20131212
  Receipt Date: 20131212
  Transmission Date: 20140711
  Serious: Yes (Other)
  Sender: FDA-Public Use
  Company Number: None

PATIENT
  Age: 48 Year
  Sex: Male
  Weight: 64.1 kg

DRUGS (6)
  1. VICTRELIS [Suspect]
     Indication: HEPATITIS C VIRUS TEST POSITIVE
     Route: 048
     Dates: start: 20130617, end: 20130819
  2. PEGASYS/RIBAVIRIN [Concomitant]
  3. HYDROXYZINE [Concomitant]
  4. TRIAMCINOLONE CREAM [Concomitant]
  5. NAPROXEN [Concomitant]
  6. RANITIDINE [Concomitant]

REACTIONS (3)
  - Rash [None]
  - Swelling [None]
  - Arthralgia [None]
